FAERS Safety Report 17371124 (Version 4)
Quarter: 2020Q4

REPORT INFORMATION
  Report Type: Other
  Country: FR (occurrence: FR)
  Receive Date: 20200205
  Receipt Date: 20201110
  Transmission Date: 20210113
  Serious: Yes (Congenital Anomaly, Other)
  Sender: FDA-Public Use
  Company Number: FR-MACLEODS PHARMACEUTICALS US LTD-MAC2020024999

PATIENT

DRUGS (14)
  1. ZIDOVUDINE. [Suspect]
     Active Substance: ZIDOVUDINE
     Indication: PRODUCT USED FOR UNKNOWN INDICATION
     Dosage: UNK, 2 COURSE, UNKNOWN TRIMESTER
     Route: 064
  2. EPIVIR [Suspect]
     Active Substance: LAMIVUDINE
     Indication: PRODUCT USED FOR UNKNOWN INDICATION
     Dosage: UNK, 1 COURSE, NOT PRIOR TO CONCEPTION AND DURING FIRST TRIMESTER
     Route: 064
     Dates: start: 20070512
  3. TENOFOVIR [Suspect]
     Active Substance: TENOFOVIR
     Indication: PRODUCT USED FOR UNKNOWN INDICATION
     Dosage: UNK, 1 COURSE, TAB/CAPS, PRIOR TO CONCEPTION AND DURING FIRST TRIMESTER OF PREGNANCY
     Route: 064
     Dates: start: 20070403, end: 20070521
  4. VIRACEPT [Suspect]
     Active Substance: NELFINAVIR MESYLATE
     Indication: PRODUCT USED FOR UNKNOWN INDICATION
     Dosage: 250 MILLIGRAM, QD, 1 COURSE, NOT PRIOR TO CONCEPTION AND DURING FIRST TRIMESTER
     Route: 064
     Dates: start: 20070512, end: 20070612
  5. RETROVIR [Suspect]
     Active Substance: ZIDOVUDINE
     Indication: PRODUCT USED FOR UNKNOWN INDICATION
     Dosage: 1 COURSE, NOT PRIOR TO CONCEPTION AND DURING FIRST TRIMESTER OF PREGNANCY
     Route: 064
     Dates: start: 20070521
  6. STOCRIN [Suspect]
     Active Substance: EFAVIRENZ
     Indication: PRODUCT USED FOR UNKNOWN INDICATION
     Dosage: UNK, 1 COURSE, PRIOR TO CONCEPTION AND DURING FIRST TRIMESTER DURING PREGNANCY
     Route: 064
     Dates: start: 20070403, end: 20070510
  7. NORVIR [Suspect]
     Active Substance: RITONAVIR
     Indication: PRODUCT USED FOR UNKNOWN INDICATION
     Dosage: UNK, 1 COURSE, DURING FIRST TRIMESTER OF PREGNANCY
     Route: 064
     Dates: start: 20070510
  8. LOPINAVIR [Suspect]
     Active Substance: LOPINAVIR
     Indication: PRODUCT USED FOR UNKNOWN INDICATION
     Dosage: UNK, DURING FIRST TRIMESTER
     Route: 064
     Dates: start: 20070510
  9. LAMIVUDINE. [Suspect]
     Active Substance: LAMIVUDINE
     Indication: PRODUCT USED FOR UNKNOWN INDICATION
     Dosage: UNK, 2 COURSE, UNKNOWN PRIOR TO CONCEPTION AND UNKNOWN TRIMESTER
     Route: 064
  10. KALETRA [Suspect]
     Active Substance: LOPINAVIR\RITONAVIR
     Indication: PRODUCT USED FOR UNKNOWN INDICATION
     Dosage: UNK, 1 COURSE, NOT PRIOR TO CONCEPTION AND DURING FIRST TRIMESTER
     Route: 064
     Dates: start: 20070510
  11. EMTRICITABINE [Suspect]
     Active Substance: EMTRICITABINE
     Indication: PRODUCT USED FOR UNKNOWN INDICATION
     Dosage: UNK, 1 COURSE, TAB/CAPS, PRIOR TO CONCEPTION AND DURING FIRST TRIMESTER DURING PREGNANCY
     Route: 064
     Dates: start: 20070403, end: 20070521
  12. ZEFFIX [Suspect]
     Active Substance: LAMIVUDINE
  13. EFAVIRENZ. [Suspect]
     Active Substance: EFAVIRENZ
     Indication: PRODUCT USED FOR UNKNOWN INDICATION
     Dosage: UNK, 2 COURSE, UNKNOWN TRIMESTER
     Route: 064
  14. RITONAVIR. [Suspect]
     Active Substance: RITONAVIR
     Indication: PRODUCT USED FOR UNKNOWN INDICATION
     Dosage: UNK, 1 COURSE, UNKNOWN PRIOR TO CONCEPTION AND UNKNOWN TRIMESTER
     Route: 064

REACTIONS (2)
  - Hydrocele [Unknown]
  - Foetal exposure during pregnancy [Unknown]
